FAERS Safety Report 9104419 (Version 2)
Quarter: 2013Q2

REPORT INFORMATION
  Report Type: Spontaneous
  Country: CR (occurrence: CR)
  Receive Date: 20130220
  Receipt Date: 20130415
  Transmission Date: 20140414
  Serious: Yes (Other)
  Sender: FDA-Public Use
  Company Number: CR-ROCHE-1192457

PATIENT
  Age: 56 Year
  Sex: Female
  Weight: 78 kg

DRUGS (6)
  1. BONVIVA [Suspect]
     Indication: OSTEOPOROSIS
     Route: 042
     Dates: start: 20130201
  2. COREG [Suspect]
     Indication: HYPERTENSION
     Route: 065
  3. RIVOTRIL [Suspect]
     Route: 048
  4. METFORMIN [Concomitant]
     Indication: DIABETES MELLITUS
     Route: 048
  5. LOVASTATIN [Concomitant]
     Indication: DYSLIPIDAEMIA
     Route: 048
  6. WELLBUTRIN [Concomitant]
     Indication: DEPRESSION
     Route: 048

REACTIONS (4)
  - Hypertension [Unknown]
  - Arrhythmia [Recovered/Resolved]
  - Tachycardia [Recovered/Resolved]
  - Dyspnoea [Recovered/Resolved]
